FAERS Safety Report 16076669 (Version 1)
Quarter: 2019Q2

REPORT INFORMATION
  Report Type: Spontaneous
  Country: US (occurrence: US)
  Receive Date: 20190314
  Receipt Date: 20190314
  Transmission Date: 20190711
  Serious: Yes (Disabling)
  Sender: FDA-Public Use
  Company Number: None

PATIENT
  Age: 70 Year
  Sex: Female
  Weight: 63 kg

DRUGS (11)
  1. TYLENOL [Concomitant]
     Active Substance: ACETAMINOPHEN
  2. ZANTAC [Concomitant]
     Active Substance: RANITIDINE HYDROCHLORIDE
  3. COQ10 [Concomitant]
     Active Substance: UBIDECARENONE
  4. OXEDROPS [Concomitant]
  5. ANTIOXIDANT COMPLEX [Concomitant]
  6. OUTBACK PAIN RELIEF OIL [Concomitant]
  7. PANTOPRAZOLE SODIUM. [Concomitant]
     Active Substance: PANTOPRAZOLE SODIUM
  8. ZYRTEC-D [Concomitant]
     Active Substance: CETIRIZINE HYDROCHLORIDE\PSEUDOEPHEDRINE HYDROCHLORIDE
  9. ROSUVASTATIN 5 MG [Suspect]
     Active Substance: ROSUVASTATIN
     Indication: HYPERCHOLESTEROLAEMIA
     Dosage: ?          QUANTITY:30 CAPSULE(S);?
     Route: 048
     Dates: start: 20180919, end: 20181004
  10. PRO-B PROBIOTICS [Concomitant]
  11. ADVIL [Concomitant]
     Active Substance: IBUPROFEN

REACTIONS (6)
  - Muscle twitching [None]
  - Pain [None]
  - Blepharospasm [None]
  - Sciatica [None]
  - Lymphadenopathy [None]
  - Vomiting [None]

NARRATIVE: CASE EVENT DATE: 20180928
